FAERS Safety Report 6435304-4 (Version None)
Quarter: 2009Q4

REPORT INFORMATION
  Report Type: 
  Country: None (occurrence: None)
  Receive Date: 20091106
  Receipt Date: 20091024
  Transmission Date: 20100525
  Serious: Yes (Other)
  Sender: FDA-Public Use
  Company Number: 002216

PATIENT
  Sex: Female

DRUGS (2)
  1. NEUPRO [Suspect]
     Indication: PARKINSON'S DISEASE
     Dosage: 16 MG TRANSDERMAL
     Route: 062
  2. MADOPAR /01585301/ [Concomitant]

REACTIONS (1)
  - DYSKINESIA [None]
